FAERS Safety Report 7437043-X (Version None)
Quarter: 2011Q2

REPORT INFORMATION
  Report Type: 
  Country: None (occurrence: None)
  Receive Date: 20110426
  Receipt Date: 20110412
  Transmission Date: 20111010
  Serious: Yes (Other)
  Sender: FDA-Public Use
  Company Number: PHHY2011SE30352

PATIENT
  Age: 76 Year
  Sex: Female

DRUGS (2)
  1. CORTISONE [Concomitant]
     Indication: POLYMYALGIA RHEUMATICA
  2. ACLASTA [Suspect]
     Indication: OSTEOPOROSIS
     Dosage: 5 MG
     Route: 042
     Dates: start: 20100309

REACTIONS (3)
  - INFECTION [None]
  - IMPAIRED HEALING [None]
  - OSTEONECROSIS [None]
